FAERS Safety Report 15210213 (Version 1)
Quarter: 2018Q3

REPORT INFORMATION
  Report Type: Spontaneous
  Country: US (occurrence: US)
  Receive Date: 20180727
  Receipt Date: 20180727
  Transmission Date: 20181010
  Serious: No
  Sender: FDA-Public Use
  Company Number: US-SHIRE-US201828726

PATIENT
  Sex: Female

DRUGS (1)
  1. XIIDRA [Suspect]
     Active Substance: LIFITEGRAST
     Indication: DRY EYE
     Dosage: UNK
     Route: 047
     Dates: start: 201807

REACTIONS (5)
  - Instillation site erythema [Unknown]
  - Dysgeusia [Unknown]
  - Instillation site pain [Unknown]
  - Condition aggravated [Unknown]
  - Eye irritation [Unknown]
